FAERS Safety Report 26021654 (Version 1)
Quarter: 2025Q4

REPORT INFORMATION
  Report Type: Spontaneous
  Country: EU (occurrence: EU)
  Receive Date: 20251110
  Receipt Date: 20251110
  Transmission Date: 20260118
  Serious: Yes (Other)
  Sender: RECKITT BENCKISER
  Company Number: None

PATIENT

DRUGS (4)
  1. SUBUTEX [Suspect]
     Active Substance: BUPRENORPHINE HYDROCHLORIDE
     Indication: Product used for unknown indication
     Dosage: 2 MILLIGRAM
     Route: 060
  2. VALIUM [Suspect]
     Active Substance: DIAZEPAM
     Indication: Product used for unknown indication
     Dosage: 80 MILLIGRAM
     Route: 048
     Dates: start: 20250528, end: 20250528
  3. VALIUM [Suspect]
     Active Substance: DIAZEPAM
     Dosage: 40 MILLIGRAM, QD
     Route: 048
  4. MORPHINE [Suspect]
     Active Substance: MORPHINE
     Indication: Product used for unknown indication
     Dosage: UNK
     Route: 065

REACTIONS (13)
  - Seizure [Unknown]
  - Aggression [Unknown]
  - Logorrhoea [Unknown]
  - Delusion [Unknown]
  - Substance use disorder [Unknown]
  - Miosis [Unknown]
  - Hyperthermia [Unknown]
  - Agitation [Unknown]
  - Tremor [Unknown]
  - Hyperhidrosis [Unknown]
  - Malaise [Unknown]
  - Tachycardia [Unknown]
  - Drug use disorder [Unknown]

NARRATIVE: CASE EVENT DATE: 20250528
